FAERS Safety Report 20443563 (Version 3)
Quarter: 2022Q2

REPORT INFORMATION
  Report Type: Report from Study
  Country: CA (occurrence: CA)
  Receive Date: 20220208
  Receipt Date: 20220412
  Transmission Date: 20220721
  Serious: Yes (Other)
  Sender: FDA-Public Use
  Company Number: CA-JNJFOC-20220209136

PATIENT
  Age: 44 Year
  Sex: Female
  Weight: 80.9 kg

DRUGS (2)
  1. REMICADE [Suspect]
     Active Substance: INFLIXIMAB
     Indication: Crohn^s disease
     Route: 042
     Dates: start: 20080102
  2. REMICADE [Suspect]
     Active Substance: INFLIXIMAB
     Dosage: ON 08-MAR-2022, RECEIVED 157TH INFUSION OF INFLIXIMAB, RECOMBINANT AND PARTIAL HARVEY-BRADSHAW COMPL
     Route: 042

REACTIONS (8)
  - Vascular device occlusion [Recovered/Resolved]
  - Rash pruritic [Recovered/Resolved]
  - Infusion related reaction [Unknown]
  - Stress [Unknown]
  - Abdominal pain [Unknown]
  - General physical health deterioration [Unknown]
  - Diarrhoea [Not Recovered/Not Resolved]
  - Inappropriate schedule of product administration [Unknown]

NARRATIVE: CASE EVENT DATE: 20220101
